FAERS Safety Report 7494462-3 (Version None)
Quarter: 2011Q2

REPORT INFORMATION
  Report Type: 
  Country: None (occurrence: None)
  Receive Date: 20110520
  Receipt Date: 20110506
  Transmission Date: 20111010
  Serious: Yes (Hospitalization, Other)
  Sender: FDA-Public Use
  Company Number: CN-TEVA-280501ISR

PATIENT
  Age: 45 Year
  Sex: Male

DRUGS (2)
  1. CISPLATIN [Suspect]
     Dosage: 3.5714 MG/M2; ON DAY 1 OF EACH 21 DAY CYCLE
  2. GEMCITABINE [Suspect]
     Dosage: 142.8571 MG/M2; CYCLE 1 - DAY 1 AND 8
     Route: 042

REACTIONS (3)
  - NEUTROPENIA [None]
  - THROMBOCYTOPENIA [None]
  - MYELITIS TRANSVERSE [None]
